FAERS Safety Report 9848155 (Version 1)
Quarter: 2014Q1

REPORT INFORMATION
  Report Type: Spontaneous
  Country: US (occurrence: US)
  Receive Date: 20140128
  Receipt Date: 20140128
  Transmission Date: 20141002
  Serious: No
  Sender: FDA-Public Use
  Company Number: US-PFIZER INC-2014021395

PATIENT
  Age: 71 Year
  Sex: Male
  Weight: 74.83 kg

DRUGS (6)
  1. LYRICA [Suspect]
     Indication: HYPOAESTHESIA
     Dosage: 50 MG, 2X/DAY
     Dates: start: 2014
  2. LYRICA [Suspect]
     Indication: PARAESTHESIA
     Dosage: 150 MG, 2X/DAY
     Route: 048
  3. LYRICA [Suspect]
     Indication: PAIN IN EXTREMITY
  4. LYRICA [Suspect]
     Indication: PAIN IN EXTREMITY
  5. CORTISONE [Concomitant]
     Indication: PAIN
     Dosage: UNK
  6. ZESTRIL [Concomitant]
     Indication: HYPERTENSION
     Dosage: 10 MG, 1X/DAY

REACTIONS (3)
  - Disorientation [Unknown]
  - Disturbance in attention [Unknown]
  - Hypoaesthesia [Unknown]
